FAERS Safety Report 9523687 (Version 1)
Quarter: 2013Q3

REPORT INFORMATION
  Report Type: Spontaneous
  Country: CA (occurrence: CA)
  Receive Date: 20130913
  Receipt Date: 20130913
  Transmission Date: 20140515
  Serious: Yes (Other)
  Sender: FDA-Public Use
  Company Number: CA-ROCHE-1274052

PATIENT
  Age: 89 Year
  Sex: Female
  Weight: 47 kg

DRUGS (4)
  1. RITUXAN [Suspect]
     Indication: PRODUCT USED FOR UNKNOWN INDICATION
     Dosage: THERAPY DURATION: 29.0 DAYS
     Route: 042
  2. ACETAMINOPHEN [Concomitant]
     Route: 065
  3. CHLORAMBUCIL [Concomitant]
     Route: 065
  4. PROCHLORPERAZINE [Concomitant]

REACTIONS (4)
  - Blood pressure decreased [Recovered/Resolved]
  - Circulatory collapse [Recovered/Resolved]
  - Dizziness [Recovered/Resolved]
  - Unresponsive to stimuli [Recovered/Resolved]
